FAERS Safety Report 8189313-8 (Version None)
Quarter: 2012Q1

REPORT INFORMATION
  Report Type: 
  Country: None (occurrence: None)
  Receive Date: 20120307
  Receipt Date: 20120301
  Transmission Date: 20120608
  Serious: Yes (Hospitalization, Other)
  Sender: FDA-Public Use
  Company Number: PHHY2011DE109174

PATIENT
  Sex: Female
  Weight: 85 kg

DRUGS (12)
  1. LISINOPRIL [Concomitant]
     Indication: HYPERTENSION
     Dosage: 1 DF, QD
     Route: 048
     Dates: start: 20060213
  2. PROTAPHANE [Concomitant]
     Indication: DIABETES MELLITUS
     Dosage: 20 IU, QD
     Dates: start: 20060116
  3. DIURETICS [Concomitant]
     Route: 048
     Dates: end: 20100621
  4. TORSEMIDE [Concomitant]
     Indication: HYPERTENSION
     Dosage: 5 MG, DAILY
     Route: 048
     Dates: start: 20111205
  5. RASILEZ HCT [Suspect]
     Dosage: 300/25 MG, DAILY
     Route: 048
     Dates: start: 20100621
  6. LERCANIDIPINE [Concomitant]
     Indication: HYPERTENSION
     Dosage: 0.5 DF, QD
     Route: 048
     Dates: start: 20031210, end: 20110629
  7. GLYBURIDE [Concomitant]
     Indication: DIABETES MELLITUS
     Dosage: 1 DF, QD
     Route: 048
     Dates: start: 20040308
  8. ACTRAPID [Concomitant]
     Indication: DIABETES MELLITUS
     Dosage: 40 IU, QD
     Route: 048
     Dates: start: 20060116
  9. SIMVASTATIN [Concomitant]
     Indication: HYPERCHOLESTEROLAEMIA
     Dosage: 40 MG, QD
     Route: 048
     Dates: start: 20080609
  10. RASILEZ HCT [Suspect]
     Indication: HYPERTENSION
     Dosage: 300/12.5 MG DAILY
     Route: 048
     Dates: start: 20081204
  11. ACETYLSALICYLIC ACID SRT [Concomitant]
     Indication: ARTERIOSCLEROSIS
     Dosage: 1 DF, QD
     Route: 048
     Dates: start: 20060116
  12. DIURETICS [Concomitant]
     Dates: start: 20111205

REACTIONS (2)
  - SUPRAVENTRICULAR TACHYCARDIA [None]
  - ATRIAL FIBRILLATION [None]
